FAERS Safety Report 4423883-8 (Version None)
Quarter: 2004Q3

REPORT INFORMATION
  Report Type: 
  Country: None (occurrence: None)
  Receive Date: 20040715
  Receipt Date: 20040220
  Transmission Date: 20050211
  Serious: Yes (Other)
  Sender: FDA-Public Use
  Company Number: 2004196507US

PATIENT
  Age: 59 Year
  Sex: Female

DRUGS (9)
  1. CELEBREX [Suspect]
     Indication: OSTEOARTHRITIS
     Dosage: 200 MG, QD, ORAL
     Route: 048
     Dates: start: 20010801, end: 20040101
  2. ALLOPURINOL [Concomitant]
  3. DIAZEPAM [Concomitant]
  4. CYANOCOBALAMIN [Concomitant]
  5. MESTINON [Concomitant]
  6. DYAZIDE [Concomitant]
  7. IMMUNE GLOBULIN INTRAVENOUS (HUMAN) [Concomitant]
  8. PROZAC [Concomitant]
  9. DELTASONE [Suspect]

REACTIONS (2)
  - GASTROINTESTINAL HAEMORRHAGE [None]
  - ULCER [None]
